FAERS Safety Report 20505975 (Version 1)
Quarter: 2022Q1

REPORT INFORMATION
  Report Type: Spontaneous
  Country: US (occurrence: None)
  Receive Date: 20220221
  Receipt Date: 20220221
  Transmission Date: 20220423
  Serious: Yes (Hospitalization, Other)
  Sender: FDA-Public Use
  Company Number: None

PATIENT
  Age: 72 Year
  Sex: Female
  Weight: 62.1 kg

DRUGS (1)
  1. PROLIA [Suspect]
     Active Substance: DENOSUMAB
     Indication: Osteoporosis
     Route: 061
     Dates: start: 20211129

REACTIONS (7)
  - Back pain [None]
  - Gait inability [None]
  - Headache [None]
  - Fatigue [None]
  - Chills [None]
  - Incontinence [None]
  - Myalgia [None]

NARRATIVE: CASE EVENT DATE: 20211129
